FAERS Safety Report 4406041-2 (Version None)
Quarter: 2004Q3

REPORT INFORMATION
  Report Type: 
  Country: None (occurrence: None)
  Receive Date: 20040715
  Receipt Date: 20040629
  Transmission Date: 20050211
  Serious: Yes (Life-Threatening)
  Sender: FDA-Public Use
  Company Number: 1997-BP-01901 (1)

PATIENT
  Age: 11 Month
  Sex: Female

DRUGS (10)
  1. VIRAMUNE [Suspect]
     Indication: HIV INFECTION
     Dosage: 160 MG (, 80 MG BID), PO
     Route: 048
     Dates: start: 19970721, end: 19970829
  2. FENTANYL [Concomitant]
  3. VERSED [Concomitant]
  4. ZIDOVUDINE (ZDV) (ZIDOVUDINE) [Concomitant]
  5. LAMIVUDINE (3TC) (LAMIVUDINE) [Concomitant]
  6. SEPTRA [Concomitant]
  7. ISONIAZID [Concomitant]
  8. AUGMENTIN '250' [Concomitant]
  9. TYLENOL [Concomitant]
  10. CEFOTAXIME SODIUM [Concomitant]

REACTIONS (15)
  - ANAEMIA [None]
  - ANOREXIA [None]
  - BACTERIURIA [None]
  - DECREASED ACTIVITY [None]
  - DEHYDRATION [None]
  - ELECTROLYTE IMBALANCE [None]
  - HAEMOLYSIS [None]
  - IRRITABILITY [None]
  - KIDNEY ENLARGEMENT [None]
  - METABOLIC ACIDOSIS [None]
  - OTITIS MEDIA [None]
  - RENAL FAILURE ACUTE [None]
  - RENAL TUBULAR NECROSIS [None]
  - SEPSIS [None]
  - VIRAL PHARYNGITIS [None]
